FAERS Safety Report 21057618 (Version 1)
Quarter: 2022Q3

REPORT INFORMATION
  Report Type: Report from Study
  Country: DE (occurrence: DE)
  Receive Date: 20220708
  Receipt Date: 20220708
  Transmission Date: 20221027
  Serious: Yes (Other)
  Sender: FDA-Public Use
  Company Number: DE-MYLANLABS-2022M1051294

PATIENT

DRUGS (16)
  1. DOXORUBICIN [Suspect]
     Active Substance: DOXORUBICIN
     Indication: B-cell lymphoma
     Dosage: UNK, CYCLE, CHOP REGIMEN; SIX CYCLES
     Route: 065
  2. CYTARABINE [Suspect]
     Active Substance: CYTARABINE
     Indication: B-cell lymphoma
     Dosage: UNK, CYCLE, DEXABEAM REGIMEN; TWO CYCLES
     Route: 065
  3. METHOTREXATE [Suspect]
     Active Substance: METHOTREXATE
     Indication: B-cell lymphoma
     Dosage: UNK, CYCLE, R-IMPV REGIMEN; THREE CYCLES
     Route: 065
  4. BORTEZOMIB [Suspect]
     Active Substance: BORTEZOMIB
     Indication: B-cell lymphoma
     Dosage: UNK, CYCLE, R-B REGIMEN; TWO CYCLES
     Route: 065
  5. CYCLOPHOSPHAMIDE [Suspect]
     Active Substance: CYCLOPHOSPHAMIDE
     Indication: B-cell lymphoma
     Dosage: UNK UNK, CYCLE, CHOP REGIMEN; SIX CYCLES
     Route: 065
  6. VINCRISTINE [Suspect]
     Active Substance: VINCRISTINE
     Indication: B-cell lymphoma
     Dosage: UNK UNK, CYCLE, CHOP REGIMEN; SIX CYCLES
     Route: 065
  7. PREDNISONE [Suspect]
     Active Substance: PREDNISONE
     Indication: B-cell lymphoma
     Dosage: UNK UNK, CYCLE, CHOP REGIMEN; SIX CYCLES
     Route: 065
  8. DEXAMETHASONE [Suspect]
     Active Substance: DEXAMETHASONE
     Indication: B-cell lymphoma
     Dosage: UNK UNK, CYCLE, DEXABEAM REGIMEN; TWO CYCLES
     Route: 065
  9. CARMUSTINE [Suspect]
     Active Substance: CARMUSTINE
     Indication: B-cell lymphoma
     Dosage: UNK UNK, CYCLE, DEXABEAM REGIMEN; TWO CYCLES
     Route: 065
  10. ETOPOSIDE [Suspect]
     Active Substance: ETOPOSIDE
     Indication: B-cell lymphoma
     Dosage: UNK UNK, CYCLE, DEXABEAM REGIMEN; TWO CYCLES
     Route: 065
  11. ETOPOSIDE [Suspect]
     Active Substance: ETOPOSIDE
     Dosage: UNK UNK, CYCLE, R-IMPV REGIMEN; THREE CYCLES
     Route: 065
  12. MELPHALAN [Suspect]
     Active Substance: MELPHALAN
     Indication: B-cell lymphoma
     Dosage: UNK UNK, CYCLE, DEXABEAM REGIMEN; TWO CYCLES
     Route: 065
  13. RITUXIMAB [Suspect]
     Active Substance: RITUXIMAB
     Indication: B-cell lymphoma
     Dosage: UNK UNK, CYCLE, R-IMPV REGIMEN; THREE CYCLES
     Route: 065
  14. RITUXIMAB [Suspect]
     Active Substance: RITUXIMAB
     Dosage: UNK UNK, CYCLE, FOUR CYCLES
     Route: 065
  15. RITUXIMAB [Suspect]
     Active Substance: RITUXIMAB
     Dosage: UNK UNK, CYCLE, R-B REGIMEN; TWO CYCLES
     Route: 065
  16. IFOSFAMIDE [Suspect]
     Active Substance: IFOSFAMIDE
     Indication: B-cell lymphoma
     Dosage: UNK UNK, CYCLE, R-IMPV REGIMEN; THREE CYCLES
     Route: 065

REACTIONS (1)
  - Acute myeloid leukaemia [Unknown]
